FAERS Safety Report 25897567 (Version 2)
Quarter: 2025Q4

REPORT INFORMATION
  Report Type: Spontaneous
  Country: JP (occurrence: JP)
  Receive Date: 20251008
  Receipt Date: 20251013
  Transmission Date: 20260118
  Serious: Yes (Life-Threatening, Hospitalization, Other)
  Sender: PFIZER
  Company Number: JP-MLMSERVICE-20250929-PI660849-00218-1

PATIENT
  Age: 87 Year
  Sex: Female

DRUGS (5)
  1. METHOTREXATE SODIUM [Suspect]
     Active Substance: METHOTREXATE SODIUM
     Indication: Polymyalgia rheumatica
     Dosage: WITH MAXIMUM DOSES 12 MG/WEEK FOR MTX
  2. METHOTREXATE SODIUM [Suspect]
     Active Substance: METHOTREXATE SODIUM
     Dosage: 6 MG, WEEKLY, MOST RECENT DOSE
  3. PREDNISOLONE [Suspect]
     Active Substance: PREDNISOLONE
     Indication: Polymyalgia rheumatica
     Dosage: WITH MAXIMUM DOSE OF 15 MG/DAY FOR PSL
  4. PREDNISOLONE [Suspect]
     Active Substance: PREDNISOLONE
     Dosage: MOST RECENT DOSE LESS THAN OR EQUAL TO 5 MG/DAY
  5. PREDNISOLONE [Suspect]
     Active Substance: PREDNISOLONE
     Dosage: 7.5 MG, 1X/DAY

REACTIONS (4)
  - Disseminated tuberculosis [Recovering/Resolving]
  - Meningitis tuberculous [Recovering/Resolving]
  - Encephalitis [Recovering/Resolving]
  - Off label use [Unknown]
